FAERS Safety Report 15648267 (Version 1)
Quarter: 2018Q4

REPORT INFORMATION
  Report Type: Spontaneous
  Country: US (occurrence: US)
  Receive Date: 20181122
  Receipt Date: 20181122
  Transmission Date: 20190205
  Serious: No
  Sender: FDA-Public Use
  Company Number: US-PFIZER INC-2018469941

PATIENT
  Age: 69 Year
  Sex: Male
  Weight: 89.8 kg

DRUGS (2)
  1. LATANOPROST. [Suspect]
     Active Substance: LATANOPROST
     Dosage: 3 OR 4 IN EACH EYE AT A TIME
  2. LATANOPROST. [Suspect]
     Active Substance: LATANOPROST
     Dosage: 3 OR 4 IN EACH EYE AT A TIME

REACTIONS (3)
  - Eye disorder [Unknown]
  - Intentional product misuse [Unknown]
  - Vision blurred [Unknown]
